FAERS Safety Report 8765679 (Version 1)
Quarter: 2012Q4

REPORT INFORMATION
  Report Type: 
  Country: BR (occurrence: BR)
  Receive Date: 20120904
  Receipt Date: 20120904
  Transmission Date: 20130627
  Serious: Yes (Other)
  Sender: FDA-Public Use
  Company Number: BR-JNJFOC-20120813618

PATIENT
  Sex: Female
  Weight: 80 kg

DRUGS (2)
  1. REMICADE [Suspect]
     Indication: PSORIASIS
     Route: 042
     Dates: start: 2007
  2. REMICADE [Suspect]
     Indication: PSORIASIS
     Route: 042
     Dates: start: 2011, end: 201201

REACTIONS (2)
  - Osteoarthritis [Recovering/Resolving]
  - Psoriasis [Unknown]
